FAERS Safety Report 7946988-3 (Version None)
Quarter: 2011Q4

REPORT INFORMATION
  Report Type: 
  Country: None (occurrence: None)
  Receive Date: 20111129
  Receipt Date: 20111121
  Transmission Date: 20120403
  Serious: Yes (Other)
  Sender: FDA-Public Use
  Company Number: US-GILEAD-2011-0046141

PATIENT
  Age: 55 Year
  Sex: Female

DRUGS (2)
  1. TYVASO [Suspect]
     Indication: PULMONARY ARTERIAL HYPERTENSION
     Dosage: UNK
     Dates: start: 20110315
  2. LETAIRIS [Suspect]
     Indication: PULMONARY HYPERTENSION
     Dosage: UNK

REACTIONS (2)
  - HAEMOGLOBIN DECREASED [None]
  - EPISTAXIS [None]
